FAERS Safety Report 7997559-4 (Version None)
Quarter: 2011Q4

REPORT INFORMATION
  Report Type: 
  Country: None (occurrence: None)
  Receive Date: 20111221
  Receipt Date: 20111214
  Transmission Date: 20120403
  Serious: Yes (Other)
  Sender: FDA-Public Use
  Company Number: JP-NAPPMUNDI-MAG-2011-0001850

PATIENT
  Sex: Female

DRUGS (5)
  1. THEOPHYLLINE [Interacting]
     Dosage: 400 MG, DAILY
  2. EPINASTINE HYDROCHLORIDE [Interacting]
     Route: 048
  3. CLARITHROMYCIN [Suspect]
  4. SINGULAIR [Interacting]
     Route: 048
  5. FLUTICASONE PROPIONATE [Interacting]
     Route: 055

REACTIONS (2)
  - DRUG INTERACTION [None]
  - MYALGIA [None]
